FAERS Safety Report 4736136-5 (Version None)
Quarter: 2005Q3

REPORT INFORMATION
  Report Type: 
  Country: None (occurrence: None)
  Receive Date: 20050728
  Receipt Date: 20050317
  Transmission Date: 20060218
  Serious: No
  Sender: FDA-Public Use
  Company Number: 200419862US

PATIENT
  Age: 66 Year
  Sex: Male
  Weight: 75 kg

DRUGS (1)
  1. KETEK [Suspect]
     Indication: INFECTION
     Dosage: 800 MG/DAY PO
     Route: 048
     Dates: start: 20041227

REACTIONS (5)
  - DIZZINESS [None]
  - HEADACHE [None]
  - NECK PAIN [None]
  - SOMNOLENCE [None]
  - VISION BLURRED [None]
